FAERS Safety Report 25044253 (Version 1)
Quarter: 2025Q1

REPORT INFORMATION
  Report Type: Spontaneous
  Country: HR (occurrence: HR)
  Receive Date: 20250306
  Receipt Date: 20250306
  Transmission Date: 20250409
  Serious: Yes (Other)
  Sender: ORGANON
  Company Number: None

PATIENT
  Age: 33 Year
  Sex: Male
  Weight: 55 kg

DRUGS (2)
  1. MOMETASONE FUROATE [Suspect]
     Active Substance: MOMETASONE FUROATE
     Indication: Eczema
     Route: 003
     Dates: start: 20140101, end: 20240301
  2. PROTOPIC [Concomitant]
     Active Substance: TACROLIMUS
     Route: 003

REACTIONS (8)
  - Topical steroid withdrawal reaction [Unknown]
  - Pruritus [Unknown]
  - Wound [Unknown]
  - Poor quality sleep [Unknown]
  - Erythema [Unknown]
  - Dermatitis [Unknown]
  - Temperature regulation disorder [Unknown]
  - Product prescribing issue [Unknown]

NARRATIVE: CASE EVENT DATE: 20140101
